FAERS Safety Report 7857516 (Version 6)
Quarter: 2013Q2

REPORT INFORMATION
  Report Type: Report from Study
  Country: US (occurrence: US)
  Receive Date: 20110316
  Receipt Date: 20130517
  Transmission Date: 20140414
  Serious: Yes (Life-Threatening, Hospitalization, Other)
  Sender: FDA-Public Use
  Company Number: US-ACTELION-A-US2011-45969

PATIENT
  Age: 45 Year
  Sex: Female

DRUGS (6)
  1. TRACLEER [Suspect]
     Indication: PULMONARY ARTERIAL HYPERTENSION
     Dosage: UNK
     Route: 048
     Dates: start: 20040105
  2. TRACLEER [Suspect]
     Dosage: UNK
     Route: 048
  3. DIGOXIN [Concomitant]
  4. LOVENOX [Concomitant]
  5. ADCIRCA [Concomitant]
  6. COUMADIN [Concomitant]

REACTIONS (11)
  - Myocardial infarction [Recovering/Resolving]
  - Road traffic accident [Unknown]
  - Limb crushing injury [Unknown]
  - Vocal cord disorder [Unknown]
  - Endotracheal intubation complication [Unknown]
  - Dysphonia [Unknown]
  - Medical induction of coma [Unknown]
  - Cardiac failure [Unknown]
  - Chest pain [Unknown]
  - Paraesthesia [Unknown]
  - Vomiting [Unknown]
